FAERS Safety Report 4623946-8 (Version None)
Quarter: 2005Q1

REPORT INFORMATION
  Report Type: 
  Country: None (occurrence: None)
  Receive Date: 20050331
  Receipt Date: 20050317
  Transmission Date: 20050727
  Serious: Yes (Death)
  Sender: FDA-Public Use
  Company Number: JP-ROCHE-398982

PATIENT
  Age: 25 Year
  Sex: Male

DRUGS (4)
  1. HORIZON [Suspect]
     Indication: CONVULSION
     Route: 030
     Dates: start: 20050101, end: 20050101
  2. REPTILASE-S [Concomitant]
     Route: 041
     Dates: start: 20050101
  3. UNSPECIFIED MEDICATION [Concomitant]
     Dosage: ANTICANCER DRUGS
  4. UNSPECIFIED MEDICATION [Concomitant]
     Dosage: ANTICONVULSANT
     Dates: start: 20050101

REACTIONS (1)
  - RESPIRATORY DEPRESSION [None]
